FAERS Safety Report 20454535 (Version 1)
Quarter: 2022Q1

REPORT INFORMATION
  Report Type: Report from Study
  Country: FR (occurrence: FR)
  Receive Date: 20220210
  Receipt Date: 20220210
  Transmission Date: 20220423
  Serious: Yes (Other)
  Sender: FDA-Public Use
  Company Number: FR-TAKEDA-FR201945893

PATIENT
  Age: 43 Year
  Sex: Male

DRUGS (8)
  1. TEDUGLUTIDE [Suspect]
     Active Substance: TEDUGLUTIDE
     Indication: Short-bowel syndrome
     Dosage: 4.55 MILLIGRAM, QD
     Route: 065
     Dates: start: 20180219
  2. TEDUGLUTIDE [Suspect]
     Active Substance: TEDUGLUTIDE
     Indication: Short-bowel syndrome
     Dosage: 4.55 MILLIGRAM, QD
     Route: 065
     Dates: start: 20180219
  3. TEDUGLUTIDE [Suspect]
     Active Substance: TEDUGLUTIDE
     Indication: Short-bowel syndrome
     Dosage: 4.55 MILLIGRAM, QD
     Route: 065
     Dates: start: 20180219
  4. TEDUGLUTIDE [Suspect]
     Active Substance: TEDUGLUTIDE
     Indication: Short-bowel syndrome
     Dosage: 4.55 MILLIGRAM, QD
     Route: 065
     Dates: start: 20180219
  5. FUSIDIC ACID [Concomitant]
     Active Substance: FUSIDIC ACID
     Indication: Antibiotic prophylaxis
     Dosage: UNK UNK, UNK
     Route: 061
     Dates: start: 201901
  6. ECONAZOLE [Concomitant]
     Active Substance: ECONAZOLE
     Indication: Psoriasis
     Dosage: UNK UNK, QD
     Route: 061
     Dates: start: 201901
  7. Locopred [Concomitant]
     Indication: Psoriasis
     Dosage: UNK UNK, QD
     Route: 061
     Dates: start: 201901
  8. INTERLEUKIN NOS [Concomitant]
     Active Substance: INTERLEUKIN NOS
     Indication: Psoriasis
     Dosage: 1 MILLIGRAM
     Route: 065
     Dates: start: 201901

REACTIONS (2)
  - Hyperleukocytosis [Not Recovered/Not Resolved]
  - Cell death [Not Recovered/Not Resolved]

NARRATIVE: CASE EVENT DATE: 20181201
